FAERS Safety Report 8463911-6 (Version None)
Quarter: 2012Q2

REPORT INFORMATION
  Report Type: 
  Country: None (occurrence: None)
  Receive Date: 20120625
  Receipt Date: 20120613
  Transmission Date: 20120825
  Serious: Yes (Other)
  Sender: FDA-Public Use
  Company Number: US-ELI_LILLY_AND_COMPANY-US201108000884

PATIENT
  Sex: Female

DRUGS (2)
  1. FORTEO [Suspect]
     Indication: OSTEOPOROSIS
     Dosage: 20 UG, QD
     Route: 065
     Dates: start: 20110715
  2. FORTEO [Suspect]
     Dosage: 20 UG, QD
     Route: 065

REACTIONS (8)
  - FIBROMYALGIA [None]
  - BURNING SENSATION [None]
  - INJURY ASSOCIATED WITH DEVICE [None]
  - SPEECH DISORDER [None]
  - ABDOMINAL PAIN UPPER [None]
  - INJECTION SITE PAIN [None]
  - BREAST CANCER [None]
  - MUSCLE SPASMS [None]
